FAERS Safety Report 8829349 (Version 2)
Quarter: 2013Q2

REPORT INFORMATION
  Report Type: Report from Study
  Country: DE (occurrence: DE)
  Receive Date: 20121008
  Receipt Date: 20130601
  Transmission Date: 20140414
  Serious: Yes (Hospitalization)
  Sender: FDA-Public Use
  Company Number: DE-ROCHE-1137220

PATIENT
  Age: 51 Year
  Sex: Female
  Weight: 58 kg

DRUGS (6)
  1. TRASTUZUMAB [Suspect]
     Indication: BREAST CANCER
     Dosage: LAST DOSE PRIOR SAE:10/SEP/2012
     Route: 042
     Dates: start: 20120817
  2. CARBOPLATIN [Suspect]
     Indication: BREAST CANCER
     Dosage: DOSE: 1.5 AUC, LAST DOSE PRIOR SAE:24/SEP/2012
     Route: 042
     Dates: start: 20120817
  3. DOXORUBICIN [Suspect]
     Indication: BREAST CANCER
     Dosage: LAST DOSE PRIOR SAE:24/SEP/2012
     Route: 042
     Dates: start: 20120817
  4. PACLITAXEL [Suspect]
     Indication: BREAST CANCER
     Dosage: LAST DOSE PRIOR SAE:24/SEP/2012
     Route: 042
     Dates: start: 20120817
  5. LAPATINIB [Suspect]
     Indication: BREAST CANCER
     Dosage: LAST DOSE PRIOR SAE:24/SEP/2012
     Route: 048
     Dates: start: 20120817, end: 20120927
  6. LAPATINIB [Suspect]
     Route: 048
     Dates: start: 20121003

REACTIONS (1)
  - General physical health deterioration [Recovered/Resolved]
